FAERS Safety Report 10643524 (Version 4)
Quarter: 2015Q4

REPORT INFORMATION
  Report Type: Spontaneous
  Country: US (occurrence: US)
  Receive Date: 20141210
  Receipt Date: 20151229
  Transmission Date: 20160304
  Serious: Yes (Death, Other)
  Sender: FDA-Public Use
  Company Number: US-PFIZER INC-2014334625

PATIENT
  Age: 36 Year
  Sex: Male

DRUGS (1)
  1. ARGATROBAN. [Suspect]
     Active Substance: ARGATROBAN
     Indication: DEEP VEIN THROMBOSIS
     Dosage: 0.8 MICROG/KG/MIN
     Route: 051

REACTIONS (7)
  - Ventricular failure [Fatal]
  - Hypoxic-ischaemic encephalopathy [Unknown]
  - Activated partial thromboplastin time prolonged [Unknown]
  - Renal impairment [Unknown]
  - Cardiogenic shock [Unknown]
  - Coagulation time prolonged [Unknown]
  - Hepatic function abnormal [Unknown]
